FAERS Safety Report 8111538-8 (Version None)
Quarter: 2012Q1

REPORT INFORMATION
  Report Type: 
  Country: None (occurrence: None)
  Receive Date: 20120202
  Receipt Date: 20120202
  Transmission Date: 20120608
  Serious: Yes (Hospitalization)
  Sender: FDA-Public Use
  Company Number: None

PATIENT
  Age: 68 Year
  Sex: Female

DRUGS (1)
  1. CEPHALEXIN [Suspect]
     Dosage: 047
     Dates: end: 20100724

REACTIONS (2)
  - RASH [None]
  - HEPATIC FAILURE [None]
